FAERS Safety Report 19414577 (Version 2)
Quarter: 2021Q3

REPORT INFORMATION
  Report Type: Report from Study
  Country: None (occurrence: CA)
  Receive Date: 20210615
  Receipt Date: 20210708
  Transmission Date: 20211014
  Serious: Yes (Other)
  Sender: FDA-Public Use
  Company Number: CA-ABBVIE-21K-028-3946520-00

PATIENT
  Sex: Female
  Weight: 26.4 kg

DRUGS (1)
  1. HUMIRA [Suspect]
     Active Substance: ADALIMUMAB
     Indication: JUVENILE IDIOPATHIC ARTHRITIS
     Route: 058
     Dates: start: 20161129

REACTIONS (3)
  - Loss of personal independence in daily activities [Unknown]
  - Back pain [Unknown]
  - Spinal fracture [Unknown]

NARRATIVE: CASE EVENT DATE: 2021
